FAERS Safety Report 13996303 (Version 5)
Quarter: 2018Q1

REPORT INFORMATION
  Report Type: Report from Study
  Country: CA (occurrence: CA)
  Receive Date: 20170921
  Receipt Date: 20180306
  Transmission Date: 20180508
  Serious: Yes (Death, Hospitalization, Other)
  Sender: FDA-Public Use
  Company Number: PHHY2016CA056709

PATIENT
  Age: 54 Year
  Sex: Male

DRUGS (2)
  1. SANDOSTATIN LAR DEPOT [Suspect]
     Active Substance: OCTREOTIDE ACETATE
     Indication: CARCINOID TUMOUR
     Dosage: 30 MG, QMO (EVERY 4 WEEKS)
     Route: 030
     Dates: start: 20160421, end: 2017
  2. AFINITOR [Suspect]
     Active Substance: EVEROLIMUS
     Indication: PANCREATIC NEUROENDOCRINE TUMOUR
     Dosage: 10 MG, QD
     Route: 048
     Dates: start: 20170829, end: 2017

REACTIONS (28)
  - Tachycardia [Unknown]
  - Metastases to liver [Unknown]
  - Blood pressure increased [Unknown]
  - Fatigue [Unknown]
  - Decreased appetite [Unknown]
  - Metastases to pelvis [Unknown]
  - Metastases to eye [Unknown]
  - Fatigue [Recovered/Resolved]
  - Needle issue [Unknown]
  - Diabetes mellitus [Unknown]
  - Night sweats [Unknown]
  - Asthenia [Unknown]
  - Hepatic pain [Unknown]
  - Pain [Unknown]
  - Nausea [Unknown]
  - Death [Fatal]
  - Metastases to central nervous system [Unknown]
  - Malignant neoplasm progression [Unknown]
  - Muscle atrophy [Unknown]
  - Abdominal pain [Unknown]
  - Product quality issue [Unknown]
  - Arthralgia [Unknown]
  - Weight decreased [Unknown]
  - Abdominal pain upper [Recovered/Resolved]
  - Blood pressure systolic increased [Unknown]
  - Pyrexia [Recovered/Resolved]
  - Injection site pain [Recovering/Resolving]
  - Injection site mass [Recovering/Resolving]

NARRATIVE: CASE EVENT DATE: 20160421
